FAERS Safety Report 19100631 (Version 1)
Quarter: 2021Q2

REPORT INFORMATION
  Report Type: Spontaneous
  Country: CN (occurrence: CN)
  Receive Date: 20210407
  Receipt Date: 20210407
  Transmission Date: 20210717
  Serious: Yes (Other)
  Sender: FDA-Public Use
  Company Number: CN-ROCHE-2799057

PATIENT
  Age: 73 Year
  Sex: Male

DRUGS (10)
  1. ICOTINIB HYDROCHLORIDE [Concomitant]
     Active Substance: ICOTINIB HYDROCHLORIDE
     Indication: LUNG NEOPLASM MALIGNANT
     Dosage: FOR 1 MONTH
     Route: 048
     Dates: start: 20191110
  2. PEMBROLIZUMAB. [Concomitant]
     Active Substance: PEMBROLIZUMAB
     Indication: LUNG NEOPLASM MALIGNANT
     Dosage: FOR FOUR CYCLES
     Dates: start: 20191216
  3. PEMBROLIZUMAB. [Concomitant]
     Active Substance: PEMBROLIZUMAB
     Dosage: FOR SIX CYCLES
     Dates: start: 20201111
  4. BEVACIZUMAB. [Suspect]
     Active Substance: BEVACIZUMAB
     Dosage: FOR 6 CYCLES
     Route: 065
     Dates: start: 20201111
  5. BEVACIZUMAB. [Suspect]
     Active Substance: BEVACIZUMAB
     Indication: LUNG NEOPLASM MALIGNANT
     Route: 065
     Dates: start: 20200513
  6. PEMBROLIZUMAB. [Concomitant]
     Active Substance: PEMBROLIZUMAB
     Dates: start: 20200513
  7. PEMETREXED. [Concomitant]
     Active Substance: PEMETREXED
     Indication: LUNG NEOPLASM MALIGNANT
     Dosage: FOR FOUR CYCLES
     Dates: start: 20191216
  8. NEDAPLATIN [Concomitant]
     Active Substance: NEDAPLATIN
     Indication: LUNG NEOPLASM MALIGNANT
     Dosage: FOR FOUR CYCLES
     Dates: start: 20191216
  9. PEMETREXED. [Concomitant]
     Active Substance: PEMETREXED
     Dates: start: 20200513
  10. VINORELBINE [Concomitant]
     Active Substance: VINORELBINE TARTRATE
     Indication: LUNG NEOPLASM MALIGNANT
     Dosage: FOR SIX CYCLES
     Route: 048
     Dates: start: 20201111

REACTIONS (2)
  - Platelet count decreased [Recovered/Resolved]
  - Interstitial lung disease [Recovering/Resolving]

NARRATIVE: CASE EVENT DATE: 202006
